FAERS Safety Report 4653998-0 (Version None)
Quarter: 2005Q2

REPORT INFORMATION
  Report Type: 
  Country: None (occurrence: None)
  Receive Date: 20050504
  Receipt Date: 20050422
  Transmission Date: 20051028
  Serious: Yes (Life-Threatening)
  Sender: FDA-Public Use
  Company Number: 10953

PATIENT
  Age: 23 Year
  Sex: Male

DRUGS (2)
  1. MIDAZOLAM [Suspect]
     Indication: DEPRESSION
     Dosage: 7.5 MG NOCTE
  2. BUPROPION [Suspect]
     Indication: DEPRESSION
     Dosage: 150 MG

REACTIONS (10)
  - ACUTE PSYCHOSIS [None]
  - HEART RATE DECREASED [None]
  - INTENTIONAL MISUSE [None]
  - IRRITABILITY [None]
  - MULTIPLE DRUG OVERDOSE [None]
  - PARANOIA [None]
  - PERSECUTORY DELUSION [None]
  - PSYCHOMOTOR AGITATION [None]
  - SOMNOLENCE [None]
  - SUICIDE ATTEMPT [None]
